FAERS Safety Report 4665033-9 (Version None)
Quarter: 2005Q2

REPORT INFORMATION
  Report Type: 
  Country: None (occurrence: None)
  Receive Date: 20050517
  Receipt Date: 20050509
  Transmission Date: 20051028
  Serious: Yes (Death)
  Sender: FDA-Public Use
  Company Number: 05H-009-0298927-00

PATIENT
  Age: 35 Year
  Sex: Female

DRUGS (4)
  1. PENTOTHAL [Suspect]
     Indication: SEDATION
     Dosage: 2-3MG.KG-1, INTRAVENOUS
     Route: 042
  2. MIDAZOLAM [Concomitant]
  3. SUFENTANIL CITRATE [Concomitant]
  4. NIMBEX [Concomitant]

REACTIONS (9)
  - CARDIAC ARREST [None]
  - FLUID RETENTION [None]
  - HAEMODIALYSIS [None]
  - HAEMODYNAMIC INSTABILITY [None]
  - HYPERKALAEMIA [None]
  - HYPOKALAEMIA [None]
  - POST PROCEDURAL COMPLICATION [None]
  - TACHYCARDIA [None]
  - UTERINE ENLARGEMENT [None]
